FAERS Safety Report 4262058-2 (Version None)
Quarter: 2004Q1

REPORT INFORMATION
  Report Type: 
  Country: None (occurrence: None)
  Receive Date: 20040102
  Receipt Date: 20031006
  Transmission Date: 20041129
  Serious: Yes (Death, Hospitalization)
  Sender: FDA-Public Use
  Company Number: JP-GLAXOSMITHKLINE-B0311176A

PATIENT
  Age: 88 Year
  Sex: Male
  Weight: 46 kg

DRUGS (18)
  1. VALTREX [Suspect]
     Indication: HERPES ZOSTER
     Dosage: 1G PER DAY
     Route: 048
     Dates: start: 20031002, end: 20031003
  2. RANITIDINE HYDROCHLORIDE [Concomitant]
     Indication: GASTRITIS
     Dosage: 150MG PER DAY
     Route: 048
  3. THEOPHYLLINE [Concomitant]
     Indication: ASTHMA
     Dosage: 200MG PER DAY
     Route: 048
  4. MOSAPRIDE CITRATE [Concomitant]
     Indication: GASTRITIS
     Dosage: 2MG PER DAY
     Route: 048
  5. CETIRIZINE HYDROCHLORIDE [Concomitant]
     Indication: SKIN INFLAMMATION
     Dosage: 10MG PER DAY
     Route: 048
  6. SENNOSIDES A + B [Concomitant]
     Indication: CONSTIPATION
     Dosage: 1G PER DAY
     Route: 048
  7. SENNOSIDE [Concomitant]
     Indication: CONSTIPATION
     Dosage: 24MG PER DAY
     Route: 048
  8. FUROSEMIDE [Concomitant]
     Indication: RENAL FAILURE CHRONIC
     Dosage: 40MG PER DAY
     Route: 048
  9. DISOPYRAMIDE [Concomitant]
     Indication: ATRIAL FIBRILLATION
     Dosage: 100MG PER DAY
     Route: 048
  10. CALCITRIOL [Concomitant]
     Indication: RENAL FAILURE CHRONIC
     Dosage: .25MCG PER DAY
     Route: 048
  11. NAFTOPIDIL [Concomitant]
     Indication: BENIGN PROSTATIC HYPERPLASIA
     Dosage: 25MG PER DAY
     Route: 048
     Dates: start: 20030808
  12. NICORANDIL [Concomitant]
     Indication: ANGINA PECTORIS
     Dosage: 15MG PER DAY
     Route: 048
  13. SARPOGRELATE HYDROCHLORIDE [Concomitant]
     Indication: ATHEROSCLEROSIS OBLITERANS
     Dosage: 150MG PER DAY
     Route: 048
  14. POLLEN EXTRACT [Concomitant]
     Indication: BENIGN PROSTATIC HYPERPLASIA
     Dosage: 189MG PER DAY
     Route: 048
     Dates: start: 20030808
  15. PRECIPITATED CALCIUM CARBONATE [Concomitant]
     Indication: RENAL FAILURE CHRONIC
     Dosage: 1.5G PER DAY
     Route: 048
  16. AMEZINIUM METILSULFATE [Concomitant]
     Indication: HAEMODIALYSIS-INDUCED SYMPTOM
     Dosage: 10MG PER DAY
     Route: 048
  17. DROXIDOPA [Concomitant]
     Indication: HAEMODIALYSIS-INDUCED SYMPTOM
     Dosage: 200MG PER DAY
     Route: 048
  18. EPOETIN BETA [Concomitant]
     Indication: NEPHROGENIC ANAEMIA
     Dosage: 3KIU PER DAY
     Route: 042

REACTIONS (11)
  - ALANINE AMINOTRANSFERASE INCREASED [None]
  - ASPARTATE AMINOTRANSFERASE INCREASED [None]
  - GAIT DISTURBANCE [None]
  - HEPATIC FUNCTION ABNORMAL [None]
  - HYPERKALAEMIA [None]
  - LOSS OF CONSCIOUSNESS [None]
  - PLATELET COUNT DECREASED [None]
  - RENAL FAILURE ACUTE [None]
  - RESPIRATORY ARREST [None]
  - SPEECH DISORDER [None]
  - TONGUE PARALYSIS [None]
